FAERS Safety Report 5991091-5 (Version None)
Quarter: 2008Q4

REPORT INFORMATION
  Report Type: 
  Country: None (occurrence: None)
  Receive Date: 20081209
  Receipt Date: 20081124
  Transmission Date: 20090506
  Serious: Yes (Hospitalization)
  Sender: FDA-Public Use
  Company Number: KV200800507

PATIENT
  Age: 74 Year
  Sex: Male
  Weight: 97.5 kg

DRUGS (9)
  1. ISOSORBIDE MONONITRATE [Suspect]
     Indication: HEART RATE IRREGULAR
     Dosage: 30 MG, QD, ORAL
     Route: 048
     Dates: start: 19980101
  2. HUMULIN (INSULIN HUMAN, INSULIN ISOPHANE, HUMAN BIOSYNTHETIC) [Concomitant]
  3. ASPIRIN [Concomitant]
  4. GLYBURIDE [Concomitant]
  5. PRAVASTATIN [Concomitant]
  6. FUROSEMIDE [Concomitant]
  7. ACTOS [Concomitant]
  8. ZENACAR [Concomitant]
  9. NIASPAN [Concomitant]

REACTIONS (5)
  - DYSPNOEA [None]
  - INSOMNIA [None]
  - PALPITATIONS [None]
  - PRODUCT QUALITY ISSUE [None]
  - RESTLESSNESS [None]
